FAERS Safety Report 4472307-3 (Version None)
Quarter: 2004Q4

REPORT INFORMATION
  Report Type: 
  Country: None (occurrence: None)
  Receive Date: 20041007
  Receipt Date: 20040924
  Transmission Date: 20050328
  Serious: Yes (Disabling)
  Sender: FDA-Public Use
  Company Number: 2003041194

PATIENT
  Age: 46 Year
  Sex: Female

DRUGS (3)
  1. LIPITOR [Suspect]
     Indication: BLOOD CHOLESTEROL
  2. WELCHOL [Concomitant]
  3. ASPIRIN [Concomitant]

REACTIONS (16)
  - ABASIA [None]
  - ARTHRALGIA [None]
  - BACK PAIN [None]
  - BLOOD CHOLESTEROL INCREASED [None]
  - DENTAL CARIES [None]
  - DENTAL EXAMINATION ABNORMAL [None]
  - GINGIVAL DISORDER [None]
  - INJURY [None]
  - JOINT STIFFNESS [None]
  - LOW DENSITY LIPOPROTEIN INCREASED [None]
  - MUSCLE INJURY [None]
  - MUSCULOSKELETAL STIFFNESS [None]
  - MYALGIA [None]
  - PAIN IN EXTREMITY [None]
  - PYREXIA [None]
  - TOOTH DISORDER [None]
